FAERS Safety Report 11737521 (Version 1)
Quarter: 2015Q4

REPORT INFORMATION
  Report Type: Spontaneous
  Country: US (occurrence: None)
  Receive Date: 20151112
  Receipt Date: 20151112
  Transmission Date: 20160304
  Serious: No
  Sender: FDA-Public Use
  Company Number: None

PATIENT
  Age: 54 Year
  Sex: Female
  Weight: 129.28 kg

DRUGS (7)
  1. LEVOFLOXACIN. [Suspect]
     Active Substance: LEVOFLOXACIN
     Indication: SURGERY
     Dosage: 10-26 TO 11-8
     Route: 048
  2. NASONEX [Concomitant]
     Active Substance: MOMETASONE FUROATE
  3. SYNTHROYD [Concomitant]
  4. EVISTA [Concomitant]
     Active Substance: RALOXIFENE HYDROCHLORIDE
  5. IBUPROFEN. [Concomitant]
     Active Substance: IBUPROFEN
  6. LEVOFLOXACIN. [Suspect]
     Active Substance: LEVOFLOXACIN
     Indication: ABSCESS
     Dosage: 10-26 TO 11-8
     Route: 048
  7. ASCIDMINFIN [Concomitant]

REACTIONS (6)
  - Arthralgia [None]
  - Tremor [None]
  - Gait disturbance [None]
  - Musculoskeletal pain [None]
  - Pain in extremity [None]
  - Neck pain [None]

NARRATIVE: CASE EVENT DATE: 20151028
